FAERS Safety Report 23451957 (Version 2)
Quarter: 2024Q1

REPORT INFORMATION
  Report Type: Spontaneous
  Country: US (occurrence: US)
  Receive Date: 20240129
  Receipt Date: 20240131
  Transmission Date: 20240410
  Serious: Yes (Life-Threatening, Hospitalization, Other)
  Sender: FDA-Public Use
  Company Number: US-PFIZER INC-PV202400010890

PATIENT
  Age: 72 Year
  Sex: Male

DRUGS (6)
  1. METHOTREXATE SODIUM [Suspect]
     Active Substance: METHOTREXATE SODIUM
     Indication: Metastases to central nervous system
     Dosage: HIGH DOSE
  2. METHOTREXATE SODIUM [Suspect]
     Active Substance: METHOTREXATE SODIUM
     Indication: Metastases to meninges
  3. RITUXIMAB [Concomitant]
     Active Substance: RITUXIMAB
     Indication: Metastases to central nervous system
     Dosage: UNK
  4. RITUXIMAB [Concomitant]
     Active Substance: RITUXIMAB
     Indication: Metastases to meninges
  5. PROCARBAZINE [Concomitant]
     Active Substance: PROCARBAZINE
     Indication: Metastases to central nervous system
     Dosage: UNK
  6. PROCARBAZINE [Concomitant]
     Active Substance: PROCARBAZINE
     Indication: Metastases to meninges

REACTIONS (5)
  - Hepatotoxicity [Recovering/Resolving]
  - Toxicity to various agents [Recovering/Resolving]
  - Gallbladder disorder [Unknown]
  - Drug clearance decreased [Unknown]
  - Drug level increased [Unknown]
